FAERS Safety Report 9012372 (Version 1)
Quarter: 2013Q1

REPORT INFORMATION
  Report Type: Spontaneous
  Country: FR (occurrence: FR)
  Receive Date: 20130114
  Receipt Date: 20130114
  Transmission Date: 20140127
  Serious: Yes (Hospitalization)
  Sender: FDA-Public Use
  Company Number: FR-ABBOTT-13P-056-1034707-00

PATIENT
  Age: 88 Year
  Sex: Female

DRUGS (3)
  1. DEPAKINE CHRONO [Suspect]
     Indication: PROPHYLAXIS
     Route: 048
     Dates: start: 20121119, end: 20121127
  2. URBANYL [Concomitant]
     Indication: PRODUCT USED FOR UNKNOWN INDICATION
     Dates: start: 20121119
  3. CROMOGLICATE SODIUM [Concomitant]
     Indication: PRODUCT USED FOR UNKNOWN INDICATION

REACTIONS (6)
  - Psychomotor retardation [Unknown]
  - Encephalopathy [Unknown]
  - Memory impairment [Unknown]
  - Mobility decreased [Unknown]
  - Confusional state [Unknown]
  - Autonomic nervous system imbalance [Unknown]
